FAERS Safety Report 6722644-4 (Version None)
Quarter: 2010Q2

REPORT INFORMATION
  Report Type: 
  Country: None (occurrence: None)
  Receive Date: 20100510
  Receipt Date: 20080109
  Transmission Date: 20101027
  Serious: No
  Sender: FDA-Public Use
  Company Number: 2008-00022

PATIENT
  Sex: Female
  Weight: 72.5755 kg

DRUGS (1)
  1. ZICAM INTENSE SINUS RELIEF [Suspect]
     Dosage: QD/ 1 DAY
     Dates: start: 20080108, end: 20080108

REACTIONS (1)
  - ANOSMIA [None]
